FAERS Safety Report 7277121 (Version 2)
Quarter: 2020Q3

REPORT INFORMATION
  Report Type: Report from Study
  Country: DE (occurrence: DE)
  Receive Date: 20100212
  Receipt Date: 20100219
  Transmission Date: 20201104
  Serious: Yes (Life-Threatening, Hospitalization, Disabling)
  Sender: FDA-Public Use
  Company Number: DE-ROCHE-606989

PATIENT
  Age: 67 Year
  Sex: Female
  Weight: 81 kg

DRUGS (7)
  1. CAPECITABINE. [Suspect]
     Active Substance: CAPECITABINE
     Indication: BREAST CANCER
     Dosage: FREQUENCY: 14 DAYS; 2000 MG/M2 DIVIDED IN TWO DAILY DOSES ON DAYS 1?14 Q DAY 22 PER PROTOCOL
     Route: 048
     Dates: start: 20050124, end: 20050522
  2. DIGITOXIN [Suspect]
     Active Substance: DIGITOXIN
     Indication: ARRHYTHMIA
     Route: 048
  3. IBANDRONIC ACID. [Suspect]
     Active Substance: IBANDRONIC ACID
     Indication: BREAST CANCER
     Route: 042
     Dates: start: 20050214
  4. ISOPTIN [Suspect]
     Active Substance: VERAPAMIL HYDROCHLORIDE
     Indication: SUPRAVENTRICULAR TACHYCARDIA
     Route: 048
  5. MARCUMAR [Concomitant]
     Active Substance: PHENPROCOUMON
     Dosage: FREQUENCY: DAILY
     Route: 048
  6. ARIMIDEX [Suspect]
     Active Substance: ANASTROZOLE
     Indication: BREAST CANCER
     Route: 048
     Dates: start: 20050214
  7. OPIPRAMOL [Suspect]
     Active Substance: OPIPRAMOL
     Indication: ANXIETY DISORDER
     Route: 048

REACTIONS (5)
  - Vertebral artery stenosis [Not Recovered/Not Resolved]
  - Arrhythmia [Recovered/Resolved]
  - Glomerulonephritis [Recovered/Resolved]
  - Pyrexia [Recovered/Resolved]
  - Atrial fibrillation [Unknown]

NARRATIVE: CASE EVENT DATE: 20060801
